FAERS Safety Report 5375285-8 (Version None)
Quarter: 2007Q2

REPORT INFORMATION
  Report Type: 
  Country: None (occurrence: None)
  Receive Date: 20070629
  Receipt Date: 20061213
  Transmission Date: 20071010
  Serious: No
  Sender: FDA-Public Use
  Company Number: US-ASTRAZENECA-2006UW28168

PATIENT
  Sex: Female

DRUGS (1)
  1. TAMOXIFEN CITRATE [Suspect]
     Indication: BREAST CANCER STAGE III
     Route: 048
     Dates: start: 20050101

REACTIONS (4)
  - OEDEMA [None]
  - PARAESTHESIA [None]
  - THYROID DISORDER [None]
  - WEIGHT INCREASED [None]
